FAERS Safety Report 10674765 (Version 1)
Quarter: 2014Q4

REPORT INFORMATION
  Report Type: Spontaneous
  Country: US (occurrence: US)
  Receive Date: 20141224
  Receipt Date: 20141224
  Transmission Date: 20150529
  Serious: Yes (Hospitalization, Other)
  Sender: FDA-Public Use
  Company Number: US-BRISTOL-MYERS SQUIBB COMPANY-BMS-2014-004633

PATIENT
  Age: 68 Year
  Sex: Male

DRUGS (8)
  1. ELIQUIS [Suspect]
     Active Substance: APIXABAN
     Indication: CEREBROVASCULAR ACCIDENT PROPHYLAXIS
     Route: 065
  2. PHOSLO [Concomitant]
     Active Substance: CALCIUM ACETATE
  3. PEPCID                             /00305201/ [Concomitant]
  4. MIDODRINE [Concomitant]
     Active Substance: MIDODRINE
  5. AMBIEN [Concomitant]
     Active Substance: ZOLPIDEM TARTRATE
  6. FLECAINIDE [Concomitant]
     Active Substance: FLECAINIDE
  7. LIPITOR [Concomitant]
     Active Substance: ATORVASTATIN CALCIUM
  8. ARANESP [Concomitant]
     Active Substance: DARBEPOETIN ALFA

REACTIONS (2)
  - Respiratory failure [Unknown]
  - Haemodialysis [Unknown]
